FAERS Safety Report 9799845 (Version 1)
Quarter: 2014Q1

REPORT INFORMATION
  Report Type: Spontaneous
  Country: NO (occurrence: NO)
  Receive Date: 20140106
  Receipt Date: 20140106
  Transmission Date: 20141002
  Serious: Yes (Death)
  Sender: FDA-Public Use
  Company Number: NO-TEVA-452764ISR

PATIENT
  Age: 12 Day
  Sex: Female
  Weight: .52 kg

DRUGS (2)
  1. IBUPROFEN [Suspect]
     Indication: DUCTUS ARTERIOSUS PREMATURE CLOSURE
     Dosage: FIRST DOSE OF SECOND COURSE
     Route: 042
     Dates: start: 20131202, end: 20131202
  2. CAFFEINE [Concomitant]
     Indication: APNOEA
     Dosage: 5 MILLIGRAM DAILY;
     Dates: start: 20131122

REACTIONS (2)
  - Death neonatal [Fatal]
  - Circulatory collapse [Fatal]
